FAERS Safety Report 20079170 (Version 3)
Quarter: 2022Q2

REPORT INFORMATION
  Report Type: Report from Study
  Country: US (occurrence: US)
  Receive Date: 20211117
  Receipt Date: 20220415
  Transmission Date: 20220721
  Serious: Yes (Other)
  Sender: FDA-Public Use
  Company Number: US-NOVARTISTESTPH-NVSC2021US261815

PATIENT
  Sex: Male

DRUGS (1)
  1. ENTRESTO [Suspect]
     Active Substance: SACUBITRIL\VALSARTAN
     Indication: Product used for unknown indication
     Dosage: UNK UNK, BID
     Route: 048
     Dates: start: 202108

REACTIONS (6)
  - Renal impairment [Unknown]
  - Liver disorder [Unknown]
  - Visual impairment [Unknown]
  - Weight increased [Recovering/Resolving]
  - Sensitivity to weather change [Recovering/Resolving]
  - Depressed mood [Recovering/Resolving]
